FAERS Safety Report 19418932 (Version 2)
Quarter: 2021Q2

REPORT INFORMATION
  Report Type: Spontaneous
  Country: US (occurrence: US)
  Receive Date: 20210615
  Receipt Date: 20210629
  Transmission Date: 20210717
  Serious: Yes (Other)
  Sender: FDA-Public Use
  Company Number: US-BIOGEN-2021BI01020598

PATIENT
  Sex: Female

DRUGS (1)
  1. TECFIDERA [Suspect]
     Active Substance: DIMETHYL FUMARATE
     Indication: RELAPSING MULTIPLE SCLEROSIS
     Route: 048
     Dates: start: 20191015, end: 20210201

REACTIONS (4)
  - Mental impairment [Unknown]
  - Gait disturbance [Unknown]
  - Seizure [Unknown]
  - Asthenia [Unknown]
